FAERS Safety Report 7199688-4 (Version None)
Quarter: 2010Q4

REPORT INFORMATION
  Report Type: 
  Country: None (occurrence: None)
  Receive Date: 20101228
  Receipt Date: 20101208
  Transmission Date: 20110411
  Serious: No
  Sender: FDA-Public Use
  Company Number: US-B.I. PHARMACEUTICALS,INC./RIDGEFIELD-2010-BP-14072BP

PATIENT
  Sex: Male

DRUGS (6)
  1. PRADAXA [Suspect]
     Indication: ATRIAL FIBRILLATION
     Dosage: 300 MG
     Route: 048
     Dates: start: 20101101
  2. LOPRESSOR [Concomitant]
     Indication: TACHYCARDIA
  3. RYTHMOL [Concomitant]
     Indication: ATRIAL FIBRILLATION
  4. ACETAMINOPHEN [Concomitant]
     Indication: JOINT STIFFNESS
  5. ASPIRIN [Concomitant]
     Indication: PROPHYLAXIS
  6. ECHINACEA [Concomitant]
     Indication: PROPHYLAXIS

REACTIONS (1)
  - PERIPHERAL COLDNESS [None]
